FAERS Safety Report 5659547-2 (Version None)
Quarter: 2008Q1

REPORT INFORMATION
  Report Type: 
  Country: None (occurrence: None)
  Receive Date: 20080310
  Receipt Date: 20080310
  Transmission Date: 20080703
  Serious: Yes (Life-Threatening, Hospitalization, Disabling, Other)
  Sender: FDA-Public Use
  Company Number: None

PATIENT
  Age: 57 Year
  Sex: Female
  Weight: 49.8957 kg

DRUGS (1)
  1. TOPROL-XL [Suspect]
     Indication: MIGRAINE
     Dosage: 200MG 2PILLS 2X''S DAILY PO
     Route: 048
     Dates: start: 20040723, end: 20040805

REACTIONS (11)
  - ADDISON'S DISEASE [None]
  - ASTHENIA [None]
  - BRADYCARDIA [None]
  - CHEST PAIN [None]
  - DRUG DISPENSING ERROR [None]
  - DYSPNOEA [None]
  - MEDICATION ERROR [None]
  - RENAL FAILURE [None]
  - SYNCOPE [None]
  - VOMITING [None]
  - WRONG DRUG ADMINISTERED [None]
